FAERS Safety Report 21380132 (Version 1)
Quarter: 2022Q3

REPORT INFORMATION
  Report Type: Spontaneous
  Country: KR (occurrence: KR)
  Receive Date: 20220927
  Receipt Date: 20220927
  Transmission Date: 20221027
  Serious: Yes (Other)
  Sender: FDA-Public Use
  Company Number: KR-ORGANON-O2209KOR001614

PATIENT
  Sex: Male

DRUGS (1)
  1. REMERON [Suspect]
     Active Substance: MIRTAZAPINE
     Dosage: UNK (REPORTED AS FILM-COATED TABLET)
     Route: 048

REACTIONS (2)
  - Drug dependence [Unknown]
  - Incorrect dose administered [Unknown]
